FAERS Safety Report 7211018-8 (Version None)
Quarter: 2011Q1

REPORT INFORMATION
  Report Type: 
  Country: None (occurrence: None)
  Receive Date: 20110105
  Receipt Date: 20110103
  Transmission Date: 20110831
  Serious: Yes (Other)
  Sender: FDA-Public Use
  Company Number: D0069049A

PATIENT
  Sex: Female

DRUGS (1)
  1. MALARONE [Suspect]
     Indication: MALARIA PROPHYLAXIS
     Dosage: 1TAB PER DAY
     Route: 048
     Dates: start: 20100927, end: 20101005

REACTIONS (4)
  - DEHYDRATION [None]
  - STAPHYLOCOCCAL INFECTION [None]
  - OEDEMA PERIPHERAL [None]
  - RENAL FAILURE [None]
